FAERS Safety Report 8955188 (Version 3)
Quarter: 2014Q2

REPORT INFORMATION
  Report Type: Spontaneous
  Country: US (occurrence: US)
  Receive Date: 20121207
  Receipt Date: 20131024
  Transmission Date: 20141212
  Serious: No
  Sender: FDA-Public Use
  Company Number: US-PFIZER INC-2012307003

PATIENT
  Sex: Male

DRUGS (2)
  1. DEPO-MEDROL [Suspect]
     Indication: ROTATOR CUFF SYNDROME
     Dosage: UNK, SINGLE
     Route: 014
     Dates: start: 2012, end: 2012
  2. ACTOS [Concomitant]
     Indication: DIABETES MELLITUS
     Dosage: UNK

REACTIONS (1)
  - Blood glucose increased [Recovered/Resolved]
